FAERS Safety Report 6962581-3 (Version None)
Quarter: 2010Q3

REPORT INFORMATION
  Report Type: 
  Country: None (occurrence: None)
  Receive Date: 20100823
  Receipt Date: 20100521
  Transmission Date: 20110219
  Serious: Yes (Other)
  Sender: FDA-Public Use
  Company Number: 012373

PATIENT
  Sex: Female

DRUGS (1)
  1. CIMZIA [Suspect]
     Indication: COLITIS
     Dosage: (SUBCUTANEOUS)
     Route: 058
     Dates: start: 20100506

REACTIONS (3)
  - ERYTHEMA [None]
  - HYPERHIDROSIS [None]
  - INJECTION SITE PAIN [None]
